FAERS Safety Report 5290898-X (Version None)
Quarter: 2007Q2

REPORT INFORMATION
  Report Type: 
  Country: None (occurrence: None)
  Receive Date: 20070409
  Receipt Date: 20070328
  Transmission Date: 20071010
  Serious: Yes (Hospitalization, Other)
  Sender: FDA-Public Use
  Company Number: JP-PFIZER INC-2007017370

PATIENT
  Age: 35 Year
  Sex: Female

DRUGS (2)
  1. UNASYN [Suspect]
     Dosage: DAILY DOSE:3GRAM
     Route: 042
  2. DRUG, UNSPECIFIED [Concomitant]
     Route: 042

REACTIONS (1)
  - ENTEROCOLITIS HAEMORRHAGIC [None]
